FAERS Safety Report 18822524 (Version 1)
Quarter: 2021Q1

REPORT INFORMATION
  Report Type: Other
  Country: AU (occurrence: AU)
  Receive Date: 20210202
  Receipt Date: 20210202
  Transmission Date: 20210419
  Serious: Yes (Life-Threatening, Other)
  Sender: FDA-Public Use
  Company Number: AU-NOVA LABORATORIES LIMITED-2106177

PATIENT
  Age: 10 Year
  Sex: Male

DRUGS (10)
  1. VINCRISTINE [Concomitant]
     Active Substance: VINCRISTINE
  2. CYTARABINE. [Suspect]
     Active Substance: CYTARABINE
     Route: 058
  3. PEG/L?ASPARAGINASE [Concomitant]
     Active Substance: PEGASPARGASE
  4. CYCLOPHOSPHAMIDE (CYCLOPHOSPHAMIDE) [Suspect]
     Active Substance: CYCLOPHOSPHAMIDE
     Route: 058
  5. DAUNORUBICIN [Concomitant]
     Active Substance: DAUNORUBICIN
  6. BORTEZOMIB. [Concomitant]
     Active Substance: BORTEZOMIB
  7. PURIXAN [Suspect]
     Active Substance: MERCAPTOPURINE
     Indication: NON-HODGKIN^S LYMPHOMA
     Route: 048
  8. CYTARABINE. [Concomitant]
     Active Substance: CYTARABINE
  9. DEXAMETHASONE. [Concomitant]
     Active Substance: DEXAMETHASONE
  10. METHOTREXATE. [Concomitant]
     Active Substance: METHOTREXATE

REACTIONS (4)
  - Pancytopenia [Unknown]
  - Febrile neutropenia [Recovering/Resolving]
  - Pneumonia [Unknown]
  - Off label use [None]
